FAERS Safety Report 7764294-7 (Version None)
Quarter: 2011Q3

REPORT INFORMATION
  Report Type: 
  Country: None (occurrence: None)
  Receive Date: 20110921
  Receipt Date: 20110712
  Transmission Date: 20111222
  Serious: No
  Sender: FDA-Public Use
  Company Number: US-BAYER-2011-061766

PATIENT
  Sex: Female

DRUGS (2)
  1. BUPRENORPHINE [Concomitant]
  2. ALEVE (CAPLET) [Suspect]
     Route: 048

REACTIONS (2)
  - MUSCLE SPASMS [None]
  - PAIN [None]
